FAERS Safety Report 5847965-9 (Version None)
Quarter: 2008Q3

REPORT INFORMATION
  Report Type: 
  Country: None (occurrence: None)
  Receive Date: 20080814
  Receipt Date: 20080729
  Transmission Date: 20090109
  Serious: Yes (Death, Life-Threatening)
  Sender: FDA-Public Use
  Company Number: 2008S1013417

PATIENT
  Age: 69 Year
  Sex: Male

DRUGS (9)
  1. AZATHIOPRINE [Suspect]
     Indication: DRUG USE FOR UNKNOWN INDICATION
     Dates: start: 20020401
  2. REMICADE [Suspect]
     Indication: DRUG USE FOR UNKNOWN INDICATION
     Dosage: 3 MG/KG; INTRAVENOUS, 3 MG/KG; INTRAVENOUS
     Route: 042
     Dates: start: 20030623, end: 20030801
  3. REMICADE [Suspect]
     Indication: DRUG USE FOR UNKNOWN INDICATION
     Dosage: 3 MG/KG; INTRAVENOUS, 3 MG/KG; INTRAVENOUS
     Route: 042
     Dates: start: 20030623, end: 20030801
  4. ALENDRONIC ACID (ALENDRONIC ACID) [Concomitant]
  5. CALCICHEW /00108001/ (CALCIUM CARBONATE) [Concomitant]
  6. DIHYDROCODEINE COMPOUND [Concomitant]
  7. ETORICOXIB (ETORICOXIB) [Concomitant]
  8. PREDNISONE [Concomitant]
  9. SULFASALAZINE [Concomitant]

REACTIONS (3)
  - ALVEOLITIS FIBROSING [None]
  - PULMONARY FIBROSIS [None]
  - RESPIRATORY FAILURE [None]
